FAERS Safety Report 12859619 (Version 12)
Quarter: 2020Q1

REPORT INFORMATION
  Report Type: Spontaneous
  Country: US (occurrence: US)
  Receive Date: 20161018
  Receipt Date: 20200225
  Transmission Date: 20200409
  Serious: Yes (Hospitalization)
  Sender: FDA-Public Use
  Company Number: US-ACTELION-A-US2016-143636

PATIENT
  Age: 62 Year
  Sex: Female
  Weight: 90.7 kg

DRUGS (4)
  1. TADALAFIL. [Concomitant]
     Active Substance: TADALAFIL
  2. TYVASO [Concomitant]
     Active Substance: TREPROSTINIL
     Dosage: 12 BREATHS INH QID
     Route: 045
     Dates: start: 20160315
  3. ELIQUIS [Concomitant]
     Active Substance: APIXABAN
  4. OPSUMIT [Suspect]
     Active Substance: MACITENTAN
     Indication: PULMONARY HYPERTENSION
     Dosage: 10 MG, QD
     Route: 048
     Dates: start: 20160901

REACTIONS (23)
  - Renal failure [Unknown]
  - Cough [Not Recovered/Not Resolved]
  - Cardiac failure [Unknown]
  - Unevaluable event [Unknown]
  - Respiratory disorder [Unknown]
  - Pulmonary hypertension [Unknown]
  - Dialysis [Unknown]
  - Abdominal pain [Recovered/Resolved]
  - Cholecystectomy [Unknown]
  - Cardiac failure congestive [Unknown]
  - Headache [Recovered/Resolved]
  - Respiratory distress [Unknown]
  - Chills [Recovered/Resolved]
  - Pneumonia [Not Recovered/Not Resolved]
  - Full blood count decreased [Unknown]
  - Hypertension [Not Recovered/Not Resolved]
  - Back pain [Recovered/Resolved]
  - Rehabilitation therapy [Recovered/Resolved]
  - Cholecystitis [Recovered/Resolved]
  - Fatigue [Not Recovered/Not Resolved]
  - Atrial fibrillation [Unknown]
  - Cholecystitis acute [Recovered/Resolved]
  - Catheterisation cardiac [Unknown]

NARRATIVE: CASE EVENT DATE: 20160926
